FAERS Safety Report 8201937-8 (Version None)
Quarter: 2012Q1

REPORT INFORMATION
  Report Type: 
  Country: None (occurrence: None)
  Receive Date: 20120312
  Receipt Date: 20120306
  Transmission Date: 20120608
  Serious: Yes (Other)
  Sender: FDA-Public Use
  Company Number: KR-PFIZER INC-2012031249

PATIENT
  Age: 71 Year
  Sex: Male
  Weight: 55 kg

DRUGS (88)
  1. DISTILLED WATER [Concomitant]
     Dosage: 5%
     Route: 042
     Dates: start: 20120117, end: 20120118
  2. DISTILLED WATER [Concomitant]
     Dosage: 5% 500 ML, UNK
     Route: 042
     Dates: start: 20120126, end: 20120126
  3. ALBUMIN HUMAN [Concomitant]
     Dosage: UNK ML, UNK
     Route: 042
     Dates: start: 20120112, end: 20120112
  4. DUPHALAC [Concomitant]
     Indication: ENEMA ADMINISTRATION
     Dosage: UNK
     Dates: start: 20120109, end: 20120109
  5. DUPHALAC [Concomitant]
     Indication: AMMONIA ABNORMAL
     Dosage: UNK
     Route: 048
     Dates: start: 20120111, end: 20120111
  6. DUPHALAC [Concomitant]
     Dosage: UNK
     Dates: start: 20120120, end: 20120120
  7. TRAVAD PHOSPHATE ENEMA [Concomitant]
     Dosage: UNK
     Dates: start: 20120126, end: 20120126
  8. DURAGESIC-100 [Concomitant]
     Indication: PAIN MANAGEMENT
     Dosage: 12 UG, UNK
     Dates: start: 20120115, end: 20120115
  9. TRIDOL [Concomitant]
     Dosage: UNK
     Route: 042
     Dates: start: 20120115, end: 20120115
  10. TRIDOL [Concomitant]
     Dosage: UNK
     Route: 042
     Dates: start: 20120120, end: 20120120
  11. SOLUTIONS FOR PARENTERAL NUTRITION [Concomitant]
     Indication: PARENTERAL NUTRITION
     Dosage: UNK
     Route: 042
     Dates: start: 20120111, end: 20120111
  12. DISTILLED WATER [Concomitant]
     Dosage: 5% 500 ML, UNK
     Route: 042
     Dates: start: 20120127, end: 20120127
  13. ALBUMIN HUMAN [Concomitant]
     Dosage: UNK ML, UNK
     Route: 042
     Dates: start: 20120120, end: 20120120
  14. PAMIDRONATE DISODIUM [Concomitant]
     Indication: SUPPLEMENTATION THERAPY
     Dosage: UNK
     Route: 042
     Dates: start: 20120114, end: 20120115
  15. DUPHALAC [Concomitant]
     Dosage: UNK
     Route: 048
     Dates: start: 20120124, end: 20120124
  16. SODIUM BICARBONATE [Concomitant]
     Indication: PROPHYLAXIS
     Dosage: UNK
     Dates: start: 20120116, end: 20120116
  17. DURAGESIC-100 [Concomitant]
     Dosage: 12 UG, UNK
     Dates: start: 20120118, end: 20120118
  18. SODIUM CHLORIDE [Concomitant]
     Dosage: UNK
     Dates: start: 20120117, end: 20120117
  19. FUROSEMIDE [Concomitant]
     Dosage: UNK
     Route: 048
     Dates: start: 20120114, end: 20120114
  20. VESICARE [Concomitant]
     Indication: URINARY INCONTINENCE
     Dosage: UNK
     Route: 048
     Dates: start: 20120118, end: 20120118
  21. TRIDOL [Concomitant]
     Dosage: UNK
     Route: 042
     Dates: start: 20120124, end: 20120125
  22. SOLU-CORTEF [Concomitant]
     Indication: HORMONE THERAPY
     Dosage: UNK
     Route: 042
     Dates: start: 20120103, end: 20120107
  23. SOLU-CORTEF [Concomitant]
     Dosage: UNK
     Route: 042
     Dates: start: 20120108, end: 20120109
  24. LASIX [Concomitant]
     Dosage: UNK
     Route: 042
     Dates: start: 20120120, end: 20120120
  25. FRESH FROZEN PLASMA [Concomitant]
     Dosage: UNK
     Dates: start: 20120102, end: 20120102
  26. FRESH FROZEN PLASMA [Concomitant]
     Dosage: UNK
     Dates: start: 20120104, end: 20120104
  27. RED BLOOD CELLS, CONCENTRATED [Concomitant]
     Dosage: UNK
     Dates: start: 20120117, end: 20120117
  28. DISTILLED WATER [Concomitant]
     Dosage: 5% 500 ML, UNK
     Route: 042
     Dates: start: 20120122, end: 20120123
  29. DISTILLED WATER [Concomitant]
     Indication: ENEMA ADMINISTRATION
     Dosage: 10%
     Dates: start: 20120109, end: 20120109
  30. PAMIDRONATE DISODIUM [Concomitant]
     Dosage: UNK
     Route: 042
     Dates: start: 20120117, end: 20120117
  31. DUPHALAC [Concomitant]
     Dosage: UNK
     Dates: start: 20120114, end: 20120114
  32. DUPHALAC [Concomitant]
     Dosage: UNK
     Route: 048
     Dates: start: 20120115, end: 20120122
  33. MEGACE [Concomitant]
     Indication: DECREASED APPETITE
     Dosage: UNK
     Route: 048
     Dates: start: 20120113, end: 20120122
  34. LASIX [Concomitant]
     Dosage: UNK
     Route: 042
     Dates: start: 20120115, end: 20120116
  35. FRESH FROZEN PLASMA [Concomitant]
     Dosage: UNK
     Dates: start: 20120125, end: 20120125
  36. SODIUM CHLORIDE [Concomitant]
     Dosage: 100 ML, UNK
     Route: 042
     Dates: start: 20120127, end: 20120127
  37. ALBUMIN HUMAN [Concomitant]
     Dosage: UNK ML, UNK
     Route: 042
     Dates: start: 20120116, end: 20120117
  38. METOCLOPRAMIDE [Concomitant]
     Indication: PROPHYLAXIS OF NAUSEA AND VOMITING
     Dosage: UNK
     Route: 042
     Dates: start: 20120112, end: 20120112
  39. METOCLOPRAMIDE [Concomitant]
     Dosage: UNK
     Route: 042
     Dates: start: 20120119, end: 20120123
  40. SODIUM CHLORIDE [Concomitant]
     Dosage: UNK
     Dates: start: 20120116, end: 20120117
  41. FUROSEMIDE [Concomitant]
     Dosage: UNK
     Route: 048
     Dates: start: 20120109, end: 20120113
  42. VESICARE [Concomitant]
     Indication: POLLAKIURIA
     Dosage: UNK
     Route: 048
     Dates: start: 20120108, end: 20120108
  43. TRIDOL [Concomitant]
     Indication: PAIN MANAGEMENT
     Dosage: UNK
     Route: 042
     Dates: start: 20120106, end: 20120107
  44. FRESH FROZEN PLASMA [Concomitant]
     Dosage: UNK
     Dates: start: 20120103, end: 20120103
  45. FRESH FROZEN PLASMA [Concomitant]
     Dosage: UNK
     Dates: start: 20120106, end: 20120106
  46. RED BLOOD CELLS, CONCENTRATED [Concomitant]
     Dosage: UNK
     Dates: start: 20120104, end: 20120104
  47. DISTILLED WATER [Concomitant]
     Dosage: 5%
     Route: 042
     Dates: start: 20120109, end: 20120109
  48. DISTILLED WATER [Concomitant]
     Dosage: 5%
     Route: 042
     Dates: start: 20120111, end: 20120111
  49. DUPHALAC [Concomitant]
     Dosage: UNK
     Route: 048
     Dates: start: 20120113, end: 20120114
  50. DUPHALAC [Concomitant]
     Dosage: UNK
     Route: 048
     Dates: start: 20120125, end: 20120127
  51. TRAVAD PHOSPHATE ENEMA [Concomitant]
     Indication: CONSTIPATION
     Dosage: UNK
     Dates: start: 20120111, end: 20120126
  52. UNISAL [Concomitant]
     Indication: DECUBITUS ULCER
     Dosage: UNK
     Dates: start: 20120113, end: 20120113
  53. SODIUM CHLORIDE [Concomitant]
     Indication: GASTRIC LAVAGE
     Dosage: UNK
     Dates: start: 20120107, end: 20120107
  54. SODIUM CHLORIDE [Concomitant]
     Indication: BLADDER IRRIGATION
     Dosage: UNK
     Dates: start: 20120113, end: 20120114
  55. ALDACTONE [Concomitant]
     Indication: DIURETIC THERAPY
     Dosage: UNK
     Route: 048
     Dates: start: 20120107, end: 20120108
  56. FUROSEMIDE [Concomitant]
     Indication: DIURETIC THERAPY
     Dosage: UNK
     Route: 048
     Dates: start: 20111231, end: 20120108
  57. LASIX [Concomitant]
     Dosage: UNK
     Route: 042
     Dates: start: 20120112, end: 20120112
  58. VITAMIN K1 [Concomitant]
     Dosage: UNK
     Route: 042
     Dates: start: 20120117, end: 20120117
  59. TIGECYCLINE [Suspect]
     Indication: SOFT TISSUE INFECTION
     Dosage: 50 MG, 2X/DAY
     Route: 042
     Dates: start: 20120107, end: 20120118
  60. DISTILLED WATER [Concomitant]
     Dosage: 5% 500 ML, UNK
     Route: 042
     Dates: start: 20120119, end: 20120119
  61. DISTILLED WATER [Concomitant]
     Dosage: 10%
     Dates: start: 20120120, end: 20120120
  62. SODIUM CHLORIDE [Concomitant]
     Indication: ELECTROLYTE SUBSTITUTION THERAPY
     Dosage: 100 ML, UNK
     Route: 042
     Dates: start: 20120107, end: 20120117
  63. POTASSIUM CHLORIDE [Concomitant]
     Dosage: 6 TABLETS
     Route: 048
     Dates: start: 20120112, end: 20120112
  64. SODIUM BICARBONATE [Concomitant]
     Dosage: UNK
     Dates: start: 20120117, end: 20120117
  65. METOCLOPRAMIDE [Concomitant]
     Indication: NAUSEA
     Dosage: UNK
     Route: 042
     Dates: start: 20120111, end: 20120111
  66. FUROSEMIDE [Concomitant]
     Dosage: UNK
     Route: 048
     Dates: start: 20120115, end: 20120118
  67. LASIX [Concomitant]
     Indication: OEDEMA
     Dosage: UNK
     Route: 042
     Dates: start: 20120108, end: 20120109
  68. DISTILLED WATER [Concomitant]
     Indication: ELECTROLYTE SUBSTITUTION THERAPY
     Dosage: 5%
     Route: 042
     Dates: start: 20120107, end: 20120107
  69. DISTILLED WATER [Concomitant]
     Dosage: 50% 500 ML, UNK
     Route: 042
     Dates: start: 20120119, end: 20120127
  70. DISTILLED WATER [Concomitant]
     Dosage: 10%
     Dates: start: 20120114, end: 20120114
  71. SODIUM CHLORIDE [Concomitant]
     Dosage: 100 ML, UNK
     Route: 042
     Dates: start: 20120118, end: 20120118
  72. SODIUM CHLORIDE [Concomitant]
     Dosage: 100 ML, UNK
     Route: 042
     Dates: start: 20120119, end: 20120124
  73. SODIUM CHLORIDE [Concomitant]
     Dosage: 100 ML, UNK
     Route: 042
     Dates: start: 20120125, end: 20120126
  74. ALBUMIN HUMAN [Concomitant]
     Dosage: UNK ML, UNK
     Route: 042
     Dates: start: 20120125, end: 20120125
  75. POTASSIUM CHLORIDE [Concomitant]
     Indication: HYPOKALAEMIA
     Dosage: 6 TABLETS
     Route: 048
     Dates: start: 20120106, end: 20120106
  76. ALMAGEL [Concomitant]
     Indication: ANTACID THERAPY
     Dosage: UNK
     Route: 048
     Dates: start: 20120112, end: 20120112
  77. METOCLOPRAMIDE [Concomitant]
     Dosage: 3 TABS
     Route: 048
     Dates: start: 20120113, end: 20120118
  78. TRIDOL [Concomitant]
     Dosage: UNK
     Route: 042
     Dates: start: 20120119, end: 20120119
  79. LASIX [Concomitant]
     Dosage: UNK
     Route: 042
     Dates: start: 20120117, end: 20120117
  80. VITAMIN K1 [Concomitant]
     Indication: PROPHYLAXIS
     Dosage: UNK
     Route: 042
     Dates: start: 20120112, end: 20120112
  81. PETHIDINE [Concomitant]
     Indication: PAIN MANAGEMENT
     Dosage: UNK
     Route: 042
     Dates: start: 20120115, end: 20120115
  82. TIGECYCLINE [Suspect]
     Indication: SKIN INFECTION
  83. DISTILLED WATER [Concomitant]
     Dosage: 5% 500 ML, UNK
     Route: 042
     Dates: start: 20120117, end: 20120117
  84. ALBUMIN HUMAN [Concomitant]
     Indication: HYPOALBUMINAEMIA
     Dosage: UNK ML, UNK
     Route: 042
     Dates: start: 20120109, end: 20120109
  85. DURAGESIC-100 [Concomitant]
     Dosage: 25 UG, UNK
     Dates: start: 20120121, end: 20120121
  86. SACCHAROMYCES BOULARDII [Concomitant]
     Indication: PROPHYLAXIS
     Dosage: UNK
     Route: 048
     Dates: start: 20120101, end: 20120122
  87. ALDACTONE [Concomitant]
     Dosage: UNK
     Route: 048
     Dates: start: 20120109, end: 20120118
  88. LASIX [Concomitant]
     Dosage: UNK
     Route: 042
     Dates: start: 20120119, end: 20120119

REACTIONS (4)
  - JAUNDICE [None]
  - PROTHROMBIN TIME PROLONGED [None]
  - HEPATIC FAILURE [None]
  - BLOOD BILIRUBIN INCREASED [None]
